FAERS Safety Report 9785423 (Version 1)
Quarter: 2013Q4

REPORT INFORMATION
  Report Type: Spontaneous
  Country: CH (occurrence: CH)
  Receive Date: 20131227
  Receipt Date: 20131227
  Transmission Date: 20140711
  Serious: Yes (Death)
  Sender: FDA-Public Use
  Company Number: CH-NAPPMUNDI-DEU-2013-0013282

PATIENT
  Age: 80 Year
  Sex: Male

DRUGS (3)
  1. PALLADON RETARD KAPSELN [Suspect]
     Indication: CANCER PAIN
     Dosage: 12 MG, Q12H
     Route: 048
  2. PALLADON 2,6 MG KAPSELN [Suspect]
     Indication: CANCER PAIN
     Dosage: 2.6 MG, PRN
     Route: 048
  3. PALLADONE [Suspect]
     Dosage: 50 MG, DAILY
     Route: 048

REACTIONS (2)
  - Death [Fatal]
  - Pain [Recovering/Resolving]
